FAERS Safety Report 19498804 (Version 1)
Quarter: 2021Q3

REPORT INFORMATION
  Report Type: Spontaneous
  Country: US (occurrence: US)
  Receive Date: 20210706
  Receipt Date: 20210706
  Transmission Date: 20211014
  Serious: No
  Sender: FDA-Public Use
  Company Number: US-GUERBET-US-20210052

PATIENT
  Age: 55 Year
  Sex: Female
  Weight: 58 kg

DRUGS (1)
  1. DOTAREM [Suspect]
     Active Substance: GADOTERATE MEGLUMINE
     Indication: MAGNETIC RESONANCE IMAGING HEAD
     Route: 042
     Dates: start: 20180502, end: 20180502

REACTIONS (7)
  - Pruritus [Recovered/Resolved]
  - Nasal congestion [Recovered/Resolved]
  - Throat irritation [Unknown]
  - Sneezing [Recovered/Resolved]
  - Ocular hyperaemia [Unknown]
  - Lacrimation increased [Recovered/Resolved]
  - Oropharyngeal pain [Unknown]

NARRATIVE: CASE EVENT DATE: 20180502
